FAERS Safety Report 18743206 (Version 3)
Quarter: 2021Q1

REPORT INFORMATION
  Report Type: Spontaneous
  Country: US (occurrence: US)
  Receive Date: 20210115
  Receipt Date: 20210317
  Transmission Date: 20210419
  Serious: No
  Sender: FDA-Public Use
  Company Number: US-APOTEX-2021AP001047

PATIENT
  Sex: Female

DRUGS (1)
  1. FENTANYL TRANSDERMAL SYSTEM [Suspect]
     Active Substance: FENTANYL
     Indication: PAIN
     Dosage: 2 PATCHES AT A TIME EVERY 72 HRS
     Route: 065

REACTIONS (4)
  - Therapeutic product effect decreased [Unknown]
  - Product substitution issue [Unknown]
  - Product adhesion issue [Unknown]
  - Device leakage [Unknown]
